FAERS Safety Report 20946797 (Version 3)
Quarter: 2022Q2

REPORT INFORMATION
  Report Type: Spontaneous
  Country: JP (occurrence: JP)
  Receive Date: 20220610
  Receipt Date: 20220615
  Transmission Date: 20220720
  Serious: Yes (Hospitalization, Other)
  Sender: FDA-Public Use
  Company Number: JP-ROCHE-2940305

PATIENT
  Age: 77 Year
  Sex: Female
  Weight: 52 kg

DRUGS (5)
  1. RITUXIMAB [Suspect]
     Active Substance: RITUXIMAB
     Indication: Diffuse large B-cell lymphoma stage IV
     Dosage: 500 MG/BODY (91%), (R-THPCOP)
     Dates: start: 20200325
  2. PIRARUBICIN [Suspect]
     Active Substance: PIRARUBICIN
     Indication: Diffuse large B-cell lymphoma stage IV
     Dosage: 50 MG/BODY (68%) (R-THPCOP)
     Dates: start: 20200325
  3. CYCLOPHOSPHAMIDE [Suspect]
     Active Substance: CYCLOPHOSPHAMIDE
     Indication: Diffuse large B-cell lymphoma stage IV
     Dosage: 750 MG/BODY (68%) (R-THPCOP)
     Dates: start: 20200325
  4. VINCRISTINE [Suspect]
     Active Substance: VINCRISTINE
     Indication: Diffuse large B-cell lymphoma stage IV
     Dosage: 1 MG/BODY (49%) (R-THPCOP)
     Dates: start: 20200325
  5. PREDNISOLONE [Suspect]
     Active Substance: PREDNISOLONE
     Indication: Diffuse large B-cell lymphoma stage IV
     Dosage: 60 MG/BODY (R-THPCOP)
     Dates: start: 20200325

REACTIONS (5)
  - Ulcer [Recovering/Resolving]
  - Peritonitis [Recovered/Resolved]
  - Gastrointestinal necrosis [Recovered/Resolved]
  - Gastrointestinal perforation [Recovered/Resolved]
  - Pancytopenia [Unknown]

NARRATIVE: CASE EVENT DATE: 20200401
